FAERS Safety Report 13416939 (Version 2)
Quarter: 2017Q2

REPORT INFORMATION
  Report Type: Report from Study
  Country: GB (occurrence: GB)
  Receive Date: 20170407
  Receipt Date: 20170413
  Transmission Date: 20170830
  Serious: Yes (Other)
  Sender: FDA-Public Use
  Company Number: GB-JNJFOC-20170405544

PATIENT
  Sex: Male

DRUGS (1)
  1. STELARA [Suspect]
     Active Substance: USTEKINUMAB
     Indication: PSORIATIC ARTHROPATHY
     Route: 058
     Dates: start: 20150914

REACTIONS (3)
  - Psoriasis [Unknown]
  - Lower respiratory tract infection [Unknown]
  - Joint stiffness [Unknown]

NARRATIVE: CASE EVENT DATE: 2017
